FAERS Safety Report 17962265 (Version 1)
Quarter: 2020Q2

REPORT INFORMATION
  Report Type: Spontaneous
  Country: US (occurrence: US)
  Receive Date: 20200629
  Receipt Date: 20200629
  Transmission Date: 20200714
  Serious: Yes (Other)
  Sender: FDA-Public Use
  Company Number: None

PATIENT
  Age: 85 Year
  Sex: Female

DRUGS (1)
  1. TRYPAN BLUE OPHTHALMIC SOLUTION [Suspect]
     Active Substance: TRYPAN BLUE
     Indication: REACTION TO AZO-DYES
     Dosage: ?          OTHER FREQUENCY:ONCE;?

REACTIONS (2)
  - Swelling [None]
  - Corneal disorder [None]

NARRATIVE: CASE EVENT DATE: 20200604
